FAERS Safety Report 23949765 (Version 1)
Quarter: 2024Q2

REPORT INFORMATION
  Report Type: Spontaneous
  Country: IT (occurrence: IT)
  Receive Date: 20240607
  Receipt Date: 20240607
  Transmission Date: 20240716
  Serious: Yes (Hospitalization)
  Sender: FDA-Public Use
  Company Number: None

PATIENT
  Age: 83 Year
  Sex: Female
  Weight: 71 kg

DRUGS (1)
  1. ENHERTU [Suspect]
     Active Substance: FAM-TRASTUZUMAB DERUXTECAN-NXKI
     Indication: Metaplastic breast carcinoma
     Dosage: 351 MG, ONCE EVERY 3 WK
     Route: 042
     Dates: start: 20240503, end: 20240503

REACTIONS (1)
  - Myocardial necrosis [Recovered/Resolved with Sequelae]

NARRATIVE: CASE EVENT DATE: 20240518
